FAERS Safety Report 8228899-1 (Version None)
Quarter: 2012Q1

REPORT INFORMATION
  Report Type: 
  Country: None (occurrence: None)
  Receive Date: 20120322
  Receipt Date: 20120313
  Transmission Date: 20120608
  Serious: Yes (Death)
  Sender: FDA-Public Use
  Company Number: FR-SANOFI-AVENTIS-2012SA016929

PATIENT
  Age: 87 Year
  Sex: Female

DRUGS (6)
  1. ALLOPURINOL [Concomitant]
     Dates: start: 20000101
  2. DANAZOL [Interacting]
     Route: 048
     Dates: start: 20111224, end: 20120118
  3. LASIX [Suspect]
     Route: 048
     Dates: start: 20050101, end: 20120122
  4. SIMVASTATIN [Interacting]
     Route: 048
     Dates: start: 20000101, end: 20120121
  5. CANDESARTAN CILEXETIL [Suspect]
     Route: 048
     Dates: start: 20000101, end: 20120122
  6. NEBIVOLOL [Concomitant]
     Dates: start: 20050101

REACTIONS (3)
  - RENAL FAILURE ACUTE [None]
  - DRUG INTERACTION [None]
  - RHABDOMYOLYSIS [None]
